FAERS Safety Report 9580501 (Version 2)
Quarter: 2013Q4

REPORT INFORMATION
  Report Type: Spontaneous
  Country: US (occurrence: None)
  Receive Date: 20131001
  Receipt Date: 20131001
  Transmission Date: 20140711
  Serious: No
  Sender: FDA-Public Use
  Company Number: None

PATIENT
  Age: 66 Year
  Sex: Male
  Weight: 89.5 kg

DRUGS (1)
  1. INTRON-A (INTERFERON ALFA-2B) [Suspect]
     Dosage: 135 MU
     Dates: end: 20130924

REACTIONS (2)
  - Hypophosphataemia [None]
  - Headache [None]
